FAERS Safety Report 10101275 (Version 1)
Quarter: 2014Q2

REPORT INFORMATION
  Report Type: Spontaneous
  Country: US (occurrence: US)
  Receive Date: 20140424
  Receipt Date: 20140424
  Transmission Date: 20141212
  Serious: No
  Sender: FDA-Public Use
  Company Number: US-PFIZER INC-2014111988

PATIENT
  Age: 67 Year
  Sex: Male
  Weight: 70.3 kg

DRUGS (2)
  1. SUTENT [Suspect]
     Indication: PANCREATIC CARCINOMA
     Dosage: 37.5 MG (BY TAKING 12.5MG THREE CAPSULES AT A TIME), 1X/DAY
     Route: 048
     Dates: start: 20131014, end: 201402
  2. ASPIRIN [Concomitant]
     Indication: CORONARY ARTERY DISEASE
     Dosage: 325 MG, 1X/DAY

REACTIONS (4)
  - Weight decreased [Unknown]
  - Hepatic function abnormal [Recovering/Resolving]
  - Disease progression [Unknown]
  - Pancreatic carcinoma [Unknown]
